FAERS Safety Report 16744676 (Version 3)
Quarter: 2019Q4

REPORT INFORMATION
  Report Type: Spontaneous
  Country: US (occurrence: US)
  Receive Date: 20190827
  Receipt Date: 20191008
  Transmission Date: 20200122
  Serious: Yes (Other)
  Sender: FDA-Public Use
  Company Number: US-BAYER-2019-156542

PATIENT
  Age: 22 Year
  Sex: Female

DRUGS (4)
  1. MIRENA [Suspect]
     Active Substance: LEVONORGESTREL
     Indication: CONTRACEPTION
     Dosage: 20 MCG/24HR, CONT
     Route: 015
     Dates: start: 20190404, end: 20190719
  2. MIRENA [Suspect]
     Active Substance: LEVONORGESTREL
     Indication: MENORRHAGIA
  3. MIRENA [Suspect]
     Active Substance: LEVONORGESTREL
     Indication: MENORRHAGIA
  4. MIRENA [Suspect]
     Active Substance: LEVONORGESTREL
     Indication: CONTRACEPTION

REACTIONS (20)
  - Cervical cyst [Recovered/Resolved]
  - Nausea [Recovered/Resolved]
  - Purulent discharge [Recovered/Resolved]
  - Pelvic fluid collection [None]
  - Malaise [Recovered/Resolved]
  - Cervix injury [Recovered/Resolved]
  - Abdominal tenderness [Recovered/Resolved]
  - Headache [None]
  - Constipation [None]
  - Back pain [None]
  - Cervicitis [Recovered/Resolved]
  - Cervical discharge [Recovered/Resolved]
  - Abdominal pain lower [Recovered/Resolved]
  - Pelvic pain [Recovered/Resolved]
  - Fatigue [Recovered/Resolved]
  - Discomfort [Recovered/Resolved]
  - Device expulsion [Recovered/Resolved]
  - Pyrexia [Recovered/Resolved]
  - Menstruation irregular [None]
  - Ovarian cyst [None]

NARRATIVE: CASE EVENT DATE: 20190719
